FAERS Safety Report 13037115 (Version 1)
Quarter: 2016Q4

REPORT INFORMATION
  Report Type: Spontaneous
  Country: CA (occurrence: CA)
  Receive Date: 20161216
  Receipt Date: 20161216
  Transmission Date: 20170207
  Serious: Yes (Other)
  Sender: FDA-Public Use
  Company Number: CA-MYLANLABS-2016M1054763

PATIENT

DRUGS (2)
  1. MORPHINE [Suspect]
     Active Substance: MORPHINE
     Dosage: 250 MG, QD
     Route: 048
     Dates: start: 20161130
  2. MORPHINE [Suspect]
     Active Substance: MORPHINE
     Indication: PAIN
     Dosage: 200 MG, QD
     Dates: start: 20161124, end: 20161130

REACTIONS (2)
  - Influenza [Recovered/Resolved]
  - Drug withdrawal syndrome [Recovered/Resolved]

NARRATIVE: CASE EVENT DATE: 20161127
